FAERS Safety Report 5347278-8 (Version None)
Quarter: 2007Q2

REPORT INFORMATION
  Report Type: 
  Country: None (occurrence: None)
  Receive Date: 20070606
  Receipt Date: 20070601
  Transmission Date: 20071010
  Serious: Yes (Other)
  Sender: FDA-Public Use
  Company Number: PHEH2007US07901

PATIENT
  Sex: Female

DRUGS (1)
  1. FEMARA [Suspect]
     Dosage: 2.5 MG, QD
     Dates: start: 20060201

REACTIONS (4)
  - ARTHRALGIA [None]
  - BONE PAIN [None]
  - CHRONIC OBSTRUCTIVE PULMONARY DISEASE [None]
  - RADIATION PNEUMONITIS [None]
